FAERS Safety Report 23671645 (Version 1)
Quarter: 2024Q1

REPORT INFORMATION
  Report Type: Spontaneous
  Country: US (occurrence: US)
  Receive Date: 20240326
  Receipt Date: 20240326
  Transmission Date: 20240410
  Serious: Yes (Other)
  Sender: FDA-Public Use
  Company Number: US-STRIDES ARCOLAB LIMITED-2023SP016430

PATIENT
  Age: 57 Year
  Sex: Female

DRUGS (3)
  1. TRIAMCINOLONE ACETONIDE [Suspect]
     Active Substance: TRIAMCINOLONE ACETONIDE
     Indication: Erythema dyschromicum perstans
     Dosage: UNK (OINTMENT)
     Route: 065
  2. CLOTRIMAZOLE [Suspect]
     Active Substance: CLOTRIMAZOLE
     Indication: Erythema dyschromicum perstans
     Dosage: UNK
     Route: 065
  3. COVID-19 vaccine [Concomitant]
     Indication: COVID-19 immunisation
     Dosage: UNK, SINGLE
     Route: 065

REACTIONS (1)
  - Therapy non-responder [Unknown]
